FAERS Safety Report 16348194 (Version 1)
Quarter: 2019Q2

REPORT INFORMATION
  Report Type: Spontaneous
  Country: US (occurrence: US)
  Receive Date: 20190417
  Receipt Date: 20190417
  Transmission Date: 20190711
  Serious: Yes (Other)
  Sender: FDA-Public Use
  Company Number: None

PATIENT
  Sex: Male

DRUGS (2)
  1. TEMOZOLOMIDE  5MG SANDOZ INC [Suspect]
     Active Substance: TEMOZOLOMIDE
  2. TEMOZOLOMIDE 180MG SANDOZ INC [Suspect]
     Active Substance: TEMOZOLOMIDE
     Dosage: ?          OTHER FREQUENCY:ONCE AT NIGHT;?
     Route: 048
     Dates: start: 20190314

REACTIONS (4)
  - Fall [None]
  - Brain neoplasm [None]
  - Therapy cessation [None]
  - Seizure [None]
